FAERS Safety Report 8506363-X (Version None)
Quarter: 2012Q3

REPORT INFORMATION
  Report Type: 
  Country: None (occurrence: None)
  Receive Date: 20120712
  Receipt Date: 20110517
  Transmission Date: 20120928
  Serious: Yes (Death, Hospitalization)
  Sender: FDA-Public Use
  Company Number: US-ROCHE-1086578

PATIENT
  Sex: Female

DRUGS (8)
  1. PLAVIX [Concomitant]
  2. FLU INJECTION [Concomitant]
     Dates: start: 20101013, end: 20101013
  3. ACTEMRA [Suspect]
     Dosage: DOSE: 30.4ML. CANCELLED DUE TO DENTAL PROCEDURE
     Dates: start: 20101029, end: 20110209
  4. FOLIC ACID [Concomitant]
     Dates: start: 20100610
  5. ARAVA [Concomitant]
     Dosage: 10-20MG DAILY
  6. PREDNISOLONE [Concomitant]
  7. TRAMADOL HCL [Concomitant]
     Dates: start: 20100623
  8. ACTEMRA [Suspect]
     Indication: RHEUMATOID ARTHRITIS
     Dosage: DOSE: 15.1ML
     Dates: start: 20101004

REACTIONS (2)
  - DEATH [None]
  - PNEUMONIA [None]
